FAERS Safety Report 9213265 (Version 1)
Quarter: 2013Q2

REPORT INFORMATION
  Report Type: Spontaneous
  Country: US (occurrence: None)
  Receive Date: 20130404
  Receipt Date: 20130404
  Transmission Date: 20140414
  Serious: Yes (Other)
  Sender: FDA-Public Use
  Company Number: None

PATIENT
  Age: 66 Year
  Sex: Male
  Weight: 73.94 kg

DRUGS (1)
  1. AZITHROMYCIN 250 MG [Suspect]

REACTIONS (2)
  - Pruritus generalised [None]
  - Rash [None]
